FAERS Safety Report 10218917 (Version 1)
Quarter: 2014Q2

REPORT INFORMATION
  Report Type: Spontaneous
  Country: RU (occurrence: RU)
  Receive Date: 20140605
  Receipt Date: 20140605
  Transmission Date: 20141212
  Serious: Yes (Other)
  Sender: FDA-Public Use
  Company Number: RU-ASTRAZENECA-2014SE37087

PATIENT
  Age: 78 Year
  Sex: Male

DRUGS (3)
  1. BICALUTAMIDE [Suspect]
     Dosage: GENERIC
     Route: 065
  2. BICALUTAMIDE [Suspect]
     Dosage: TEVA
     Route: 065
  3. BICALUTAMIDE [Suspect]
     Dosage: RUSSIA
     Route: 065

REACTIONS (2)
  - Prostatomegaly [Unknown]
  - Pruritus [Unknown]
